FAERS Safety Report 9308959 (Version 1)
Quarter: 2013Q2

REPORT INFORMATION
  Report Type: Spontaneous
  Country: GB (occurrence: GB)
  Receive Date: 20130524
  Receipt Date: 20130524
  Transmission Date: 20140414
  Serious: Yes (Hospitalization)
  Sender: FDA-Public Use
  Company Number: GB-009507513-1305GBR013548

PATIENT
  Age: 65 Year
  Sex: Female
  Weight: 60 kg

DRUGS (12)
  1. DEXAMETHASONE TABLETS BP 2.0MG [Suspect]
     Indication: PLASMA CELL MYELOMA
     Dosage: 10 MG, UNK
     Route: 048
     Dates: start: 20130319
  2. DOXORUBICIN [Suspect]
     Indication: PLASMA CELL MYELOMA
     Dosage: 14 MG/M2, UNK
     Route: 042
     Dates: start: 20130319
  3. VELCADE [Suspect]
     Indication: PLASMA CELL MYELOMA
     Dosage: 1.3 MG/M2, UNK
     Route: 058
     Dates: start: 20130319
  4. ACYCLOVIR [Concomitant]
     Dosage: 800 MG, UNK
     Route: 048
  5. ALLOPURINOL [Concomitant]
     Dosage: 300 MG, UNK
     Route: 048
  6. CITALOPRAM [Concomitant]
  7. SULFAMETHOXAZOLE (+) TRIMETHOPRIM [Concomitant]
     Dosage: 480 MG, UNK
     Route: 048
  8. DIAZEPAM [Concomitant]
  9. FLUCONAZOLE [Concomitant]
     Dosage: 50 MG, UNK
     Route: 048
  10. LANSOPRAZOLE [Concomitant]
     Dosage: 30 MG, UNK
     Route: 048
  11. MAXOLON [Concomitant]
     Dosage: 30 MG, UNK
     Route: 048
  12. VENTOLIN (ALBUTEROL) [Concomitant]

REACTIONS (1)
  - Lower respiratory tract infection [Recovered/Resolved]
